FAERS Safety Report 23234557 (Version 1)
Quarter: 2023Q4

REPORT INFORMATION
  Report Type: Spontaneous
  Country: JP (occurrence: JP)
  Receive Date: 20231128
  Receipt Date: 20231128
  Transmission Date: 20240110
  Serious: Yes (Other)
  Sender: FDA-Public Use
  Company Number: JP-OTSUKA-2023_030441

PATIENT
  Age: 6 Year
  Sex: Female

DRUGS (2)
  1. SAMSCA [Suspect]
     Active Substance: TOLVAPTAN
     Indication: Inappropriate antidiuretic hormone secretion
     Dosage: 0.4MG/KG
     Route: 065
  2. SAMSCA [Suspect]
     Active Substance: TOLVAPTAN
     Dosage: 0.1MG/KG
     Route: 065

REACTIONS (4)
  - Blood sodium increased [Unknown]
  - Specific gravity urine decreased [Unknown]
  - Polyuria [Unknown]
  - Product use issue [Unknown]
